FAERS Safety Report 8949539 (Version 1)
Quarter: 2012Q4

REPORT INFORMATION
  Report Type: Report from Study
  Country: GB (occurrence: GB)
  Receive Date: 20121206
  Receipt Date: 20121206
  Transmission Date: 20130627
  Serious: Yes (Hospitalization)
  Sender: FDA-Public Use
  Company Number: GB-ABBOTT-12P-167-1014974-00

PATIENT
  Sex: Female

DRUGS (8)
  1. HUMIRA [Suspect]
     Indication: RHEUMATOID ARTHRITIS
     Route: 058
     Dates: start: 20080908
  2. METHOTREXATE [Concomitant]
     Indication: PRODUCT USED FOR UNKNOWN INDICATION
     Dosage: once a week/Fri
     Route: 048
  3. FOLIC ACID [Concomitant]
     Indication: PRODUCT USED FOR UNKNOWN INDICATION
     Dosage: once a week/Mon
     Route: 048
  4. CERAZETTE [Concomitant]
     Indication: PRODUCT USED FOR UNKNOWN INDICATION
     Dosage: morning
     Route: 048
  5. PARACETAMOL [Concomitant]
     Indication: PAIN
     Route: 048
  6. DIHYDROCODEINE [Concomitant]
     Indication: PAIN
     Route: 048
  7. SENNA [Concomitant]
     Indication: CONSTIPATION
     Dosage: morning and night
     Route: 048
  8. DALTEPARIN [Concomitant]
     Indication: PRODUCT USED FOR UNKNOWN INDICATION
     Dosage: tea time
     Route: 058

REACTIONS (2)
  - Ankle fracture [Recovering/Resolving]
  - Joint dislocation [Recovering/Resolving]
